FAERS Safety Report 24657565 (Version 2)
Quarter: 2025Q1

REPORT INFORMATION
  Report Type: Spontaneous
  Country: US (occurrence: US)
  Receive Date: 20241125
  Receipt Date: 20250115
  Transmission Date: 20250408
  Serious: Yes (Hospitalization)
  Sender: SAREPTA THERAPEUTICS
  Company Number: US-SAREPTA THERAPEUTICS INC.-SRP2024-005274

PATIENT
  Sex: Male

DRUGS (3)
  1. ELEVIDYS [Suspect]
     Active Substance: DELANDISTROGENE MOXEPARVOVEC-ROKL
     Indication: Product used for unknown indication
     Route: 065
     Dates: start: 20241001, end: 20241001
  2. EMFLAZA [Concomitant]
     Active Substance: DEFLAZACORT
     Indication: Product used for unknown indication
     Dosage: 40.95 MILLIGRAM, QD
  3. PREDNISOLONE [Concomitant]
     Active Substance: PREDNISOLONE
     Indication: Gene therapy

REACTIONS (3)
  - Hepatitis [Unknown]
  - Liver injury [Unknown]
  - Hepatic enzyme increased [Unknown]
